FAERS Safety Report 11460486 (Version 2)
Quarter: 2015Q4

REPORT INFORMATION
  Report Type: Spontaneous
  Country: US (occurrence: US)
  Receive Date: 20150904
  Receipt Date: 20151125
  Transmission Date: 20160304
  Serious: Yes (Hospitalization, Other)
  Sender: FDA-Public Use
  Company Number: US-PFIZER INC-2015291298

PATIENT
  Age: 41 Year
  Sex: Female
  Weight: 72.56 kg

DRUGS (4)
  1. TETRACAINE. [Concomitant]
     Active Substance: TETRACAINE
     Dosage: UNK
  2. VALIUM [Concomitant]
     Active Substance: DIAZEPAM
     Dosage: 10 MG, UNK
  3. VISTARIL [Suspect]
     Active Substance: HYDROXYZINE PAMOATE
     Indication: ENDOSCOPY
     Dosage: 10 MG, ONCE
     Dates: start: 1992, end: 1992
  4. DEMEROL [Suspect]
     Active Substance: MEPERIDINE HYDROCHLORIDE
     Indication: ENDOSCOPY
     Dosage: 25 MG, ONCE
     Route: 042
     Dates: start: 1992, end: 1992

REACTIONS (2)
  - Cellulitis [Recovered/Resolved]
  - Drug hypersensitivity [Recovered/Resolved]
